APPROVED DRUG PRODUCT: ANCEF
Active Ingredient: CEFAZOLIN SODIUM
Strength: EQ 250MG BASE/VIAL **Federal Register determination that product was not discontinued or withdrawn for safety or effectiveness reasons**
Dosage Form/Route: INJECTABLE;INJECTION
Application: N050461 | Product #001
Applicant: GLAXOSMITHKLINE
Approved: Approved Prior to Jan 1, 1982 | RLD: Yes | RS: No | Type: DISCN